FAERS Safety Report 6180753-5 (Version None)
Quarter: 2009Q2

REPORT INFORMATION
  Report Type: 
  Country: None (occurrence: None)
  Receive Date: 20090506
  Receipt Date: 20090429
  Transmission Date: 20091009
  Serious: Yes (Other)
  Sender: FDA-Public Use
  Company Number: GB-ROCHE-630905

PATIENT
  Sex: Female
  Weight: 118 kg

DRUGS (2)
  1. XENICAL [Suspect]
     Indication: OBESITY
     Route: 048
     Dates: start: 20080808
  2. SIMVASTATIN [Concomitant]
     Dosage: STARTED SEVEN MONTHS AGO.
     Route: 048

REACTIONS (1)
  - DIABETES MELLITUS [None]
